FAERS Safety Report 5940054-4 (Version None)
Quarter: 2008Q4

REPORT INFORMATION
  Report Type: 
  Country: None (occurrence: None)
  Receive Date: 20081104
  Receipt Date: 20081027
  Transmission Date: 20090506
  Serious: Yes (Other)
  Sender: FDA-Public Use
  Company Number: PHEH2008US09641

PATIENT
  Sex: Female

DRUGS (1)
  1. ZOMETA [Suspect]

REACTIONS (10)
  - ABSCESS [None]
  - FACIAL PAIN [None]
  - INFECTION [None]
  - INJURY [None]
  - MUCOSAL NECROSIS [None]
  - OSTEOMYELITIS [None]
  - OSTEONECROSIS [None]
  - PURULENT DISCHARGE [None]
  - PYREXIA [None]
  - QUALITY OF LIFE DECREASED [None]
